APPROVED DRUG PRODUCT: MUCINEX DM
Active Ingredient: DEXTROMETHORPHAN HYDROBROMIDE; GUAIFENESIN
Strength: 30MG;600MG
Dosage Form/Route: TABLET, EXTENDED RELEASE;ORAL
Application: N021620 | Product #002
Applicant: RB HEALTH US LLC
Approved: Apr 29, 2004 | RLD: Yes | RS: No | Type: OTC